FAERS Safety Report 4936402-4 (Version None)
Quarter: 2006Q1

REPORT INFORMATION
  Report Type: 
  Country: None (occurrence: None)
  Receive Date: 20060302
  Receipt Date: 20060215
  Transmission Date: 20060701
  Serious: Yes (Other)
  Sender: FDA-Public Use
  Company Number: US200602003081

PATIENT
  Age: 51 Year
  Sex: Female

DRUGS (4)
  1. GEMZAR [Suspect]
     Indication: OVARIAN CANCER
     Dosage: INTRAVENOUS
     Route: 042
     Dates: start: 20051101
  2. TOPROL-XL [Concomitant]
  3. ASA (ASPIRIN (ACETYLSALICYLIC ACID) [Concomitant]
  4. NEUPOGEN [Concomitant]

REACTIONS (3)
  - FULL BLOOD COUNT DECREASED [None]
  - RASH PRURITIC [None]
  - RECALL PHENOMENON [None]
